FAERS Safety Report 4928991-0 (Version None)
Quarter: 2006Q1

REPORT INFORMATION
  Report Type: 
  Country: None (occurrence: None)
  Receive Date: 20060301
  Receipt Date: 20060222
  Transmission Date: 20060701
  Serious: Yes (Other)
  Sender: FDA-Public Use
  Company Number: 2006UW02986

PATIENT
  Age: 32 Year
  Sex: Female
  Weight: 52.2 kg

DRUGS (1)
  1. SEROQUEL [Suspect]
     Indication: SCHIZOPHRENIA, PARANOID TYPE
     Route: 048

REACTIONS (3)
  - ASTHENIA [None]
  - HUNGER [None]
  - LOSS OF CONSCIOUSNESS [None]
